FAERS Safety Report 12323411 (Version 1)
Quarter: 2016Q2

REPORT INFORMATION
  Report Type: Spontaneous
  Country: BR (occurrence: BR)
  Receive Date: 20160502
  Receipt Date: 20160502
  Transmission Date: 20160815
  Serious: Yes (Other)
  Sender: FDA-Public Use
  Company Number: BR-JNJFOC-20160425368

PATIENT
  Age: 1 Year
  Sex: Male

DRUGS (1)
  1. PANTELMIN [Suspect]
     Active Substance: MEBENDAZOLE
     Indication: INFECTION PROPHYLAXIS
     Route: 048
     Dates: start: 201602

REACTIONS (5)
  - Pyrexia [Unknown]
  - Vomiting [Unknown]
  - Weight decreased [Not Recovered/Not Resolved]
  - Abdominal pain upper [Unknown]
  - Diarrhoea [Not Recovered/Not Resolved]

NARRATIVE: CASE EVENT DATE: 201603
